FAERS Safety Report 12664002 (Version 1)
Quarter: 2016Q3

REPORT INFORMATION
  Report Type: Spontaneous
  Country: US (occurrence: US)
  Receive Date: 20160818
  Receipt Date: 20160818
  Transmission Date: 20161109
  Serious: Yes (Other)
  Sender: FDA-Public Use
  Company Number: US-GLAXOSMITHKLINE-US2016119543

PATIENT
  Age: 95 Year
  Sex: Female

DRUGS (1)
  1. CITRUCEL [Suspect]
     Active Substance: METHYLCELLULOSE (4000 MPA.S)
     Indication: CHANGE OF BOWEL HABIT
     Dosage: UNK
     Dates: start: 201605

REACTIONS (2)
  - Choking [Recovered/Resolved]
  - Aphasia [Recovered/Resolved]
